FAERS Safety Report 5030835-6 (Version None)
Quarter: 2006Q2

REPORT INFORMATION
  Report Type: 
  Country: None (occurrence: None)
  Receive Date: 20060619
  Receipt Date: 20060609
  Transmission Date: 20061013
  Serious: Yes (Hospitalization)
  Sender: FDA-Public Use
  Company Number: CAP06000140

PATIENT
  Age: 74 Year
  Sex: Female

DRUGS (2)
  1. ACTONEL [Suspect]
     Indication: BONE DISORDER
     Dosage: 35 MG ONCE WEEKLY, ORAL
     Route: 048
     Dates: start: 20050901
  2. CITALOPRAM HYDROBROMIDE [Concomitant]

REACTIONS (3)
  - ASTHENIA [None]
  - COLON NEOPLASM [None]
  - TREMOR [None]
